FAERS Safety Report 4735228-4 (Version None)
Quarter: 2005Q3

REPORT INFORMATION
  Report Type: 
  Country: None (occurrence: None)
  Receive Date: 20050805
  Receipt Date: 20050727
  Transmission Date: 20060218
  Serious: Yes (Hospitalization)
  Sender: FDA-Public Use
  Company Number: IT-ABBOTT-05P-083-0307039-00

PATIENT
  Age: 59 Year
  Sex: Male

DRUGS (1)
  1. CLARITHROMYCIN [Suspect]
     Indication: BRONCHITIS ACUTE
     Route: 048

REACTIONS (3)
  - BRONCHOSTENOSIS [None]
  - COUGH [None]
  - DYSPNOEA [None]
